FAERS Safety Report 10097992 (Version 1)
Quarter: 2014Q2

REPORT INFORMATION
  Report Type: Spontaneous
  Country: DE (occurrence: DE)
  Receive Date: 20140423
  Receipt Date: 20140423
  Transmission Date: 20141212
  Serious: Yes (Other)
  Sender: FDA-Public Use
  Company Number: DE-ASTRAZENECA-2014SE26680

PATIENT
  Age: 63 Year
  Sex: Female

DRUGS (4)
  1. SYMBICORT TURBOHALER [Suspect]
     Indication: CHRONIC OBSTRUCTIVE PULMONARY DISEASE
     Dosage: 320/9 MCG, 1 PUFF TWICE DAILY
     Route: 055
     Dates: start: 2014
  2. SYMBICORT TURBOHALER [Suspect]
     Indication: ASTHMA
     Dosage: 320/9 MCG, 1 PUFF TWICE DAILY
     Route: 055
     Dates: start: 2014
  3. BRETARIS GENUAIR [Concomitant]
     Indication: CHRONIC OBSTRUCTIVE PULMONARY DISEASE
     Route: 055
  4. BRETARIS GENUAIR [Concomitant]
     Indication: ASTHMA
     Route: 055

REACTIONS (3)
  - Chronic obstructive pulmonary disease [Not Recovered/Not Resolved]
  - Circumstance or information capable of leading to medication error [Unknown]
  - Drug ineffective [Unknown]
